FAERS Safety Report 18965979 (Version 1)
Quarter: 2021Q1

REPORT INFORMATION
  Report Type: Spontaneous
  Country: AU (occurrence: AU)
  Receive Date: 20210304
  Receipt Date: 20210304
  Transmission Date: 20210420
  Serious: Yes (Other)
  Sender: FDA-Public Use
  Company Number: AU-LEO PHARMA-334931

PATIENT
  Age: 57 Year
  Sex: Male

DRUGS (2)
  1. DAIVOBET [Suspect]
     Active Substance: BETAMETHASONE DIPROPIONATE\CALCIPOTRIENE
     Indication: PSORIASIS
     Dosage: DAIVOBET?? 50/500 OINTMENT?DOSAGE : APPLY TWICE A DAY TO AFFECT SKIN ON LEG, ELBOWS, KNEES, HIP AND T
     Dates: start: 20210201, end: 20210215
  2. DAIVOBET [Suspect]
     Active Substance: BETAMETHASONE DIPROPIONATE\CALCIPOTRIENE
     Indication: PSORIASIS
     Dosage: DAIVOBET?? 50/500 OINTMENT?DOSAGE : APPLY TWICE A DAY TO AFFECT SKIN ON LEG, ELBOWS, KNEES, HIP AND T
     Dates: start: 20210201, end: 20210215

REACTIONS (2)
  - Inappropriate schedule of product administration [Unknown]
  - Psoriatic arthropathy [Not Recovered/Not Resolved]

NARRATIVE: CASE EVENT DATE: 202102
